FAERS Safety Report 11843489 (Version 1)
Quarter: 2015Q4

REPORT INFORMATION
  Report Type: Spontaneous
  Country: US (occurrence: US)
  Receive Date: 20151217
  Receipt Date: 20151217
  Transmission Date: 20160305
  Serious: Yes (Hospitalization, Other)
  Sender: FDA-Public Use
  Company Number: US-ABBVIE-15P-163-1516957-00

PATIENT
  Age: 63 Year
  Sex: Female

DRUGS (6)
  1. HUMIRA [Suspect]
     Active Substance: ADALIMUMAB
     Indication: ARTHRITIS
     Route: 058
  2. XELJANZ [Suspect]
     Active Substance: TOFACITINIB CITRATE
     Indication: ARTHRITIS
     Route: 065
     Dates: start: 201508
  3. HUMIRA [Suspect]
     Active Substance: ADALIMUMAB
     Indication: JOINT SWELLING
     Route: 058
     Dates: start: 2014, end: 201508
  4. HUMIRA [Suspect]
     Active Substance: ADALIMUMAB
     Indication: ARTHRITIS
     Route: 058
     Dates: start: 201208
  5. PLAQUENIL [Concomitant]
     Active Substance: HYDROXYCHLOROQUINE SULFATE
     Indication: PRODUCT USED FOR UNKNOWN INDICATION
     Dates: start: 2001
  6. HUMIRA [Suspect]
     Active Substance: ADALIMUMAB
     Indication: JOINT SWELLING

REACTIONS (22)
  - Arthritis [Not Recovered/Not Resolved]
  - Injection site swelling [Unknown]
  - Peripheral swelling [Unknown]
  - Headache [Recovered/Resolved]
  - Lip injury [Not Recovered/Not Resolved]
  - Gastric disorder [Unknown]
  - Injection site pruritus [Unknown]
  - Photophobia [Unknown]
  - Sleep disorder [Unknown]
  - Muscular weakness [Unknown]
  - Feeling abnormal [Recovered/Resolved]
  - Joint stiffness [Not Recovered/Not Resolved]
  - Headache [Unknown]
  - Swollen tongue [Not Recovered/Not Resolved]
  - Lip swelling [Not Recovered/Not Resolved]
  - Loss of consciousness [Unknown]
  - Hip fracture [Unknown]
  - Photophobia [Recovered/Resolved]
  - Joint swelling [Not Recovered/Not Resolved]
  - Dysgeusia [Not Recovered/Not Resolved]
  - Nausea [Unknown]
  - Injection site erythema [Unknown]

NARRATIVE: CASE EVENT DATE: 201208
